FAERS Safety Report 5482710-0 (Version None)
Quarter: 2007Q4

REPORT INFORMATION
  Report Type: 
  Country: None (occurrence: None)
  Receive Date: 20071011
  Receipt Date: 20071001
  Transmission Date: 20080405
  Serious: Yes (Hospitalization)
  Sender: FDA-Public Use
  Company Number: FR-PFIZER INC-2007081763

PATIENT
  Sex: Male

DRUGS (10)
  1. TRIFLUCAN [Suspect]
     Dosage: DAILY DOSE:400MG
     Route: 048
  2. CIFLOX [Suspect]
     Dosage: DAILY DOSE:500MG
     Route: 048
     Dates: start: 20070606, end: 20070612
  3. ALL OTHER THERAPEUTIC PRODUCTS [Suspect]
     Indication: ACUTE LYMPHOCYTIC LEUKAEMIA RECURRENT
     Dosage: DAILY DOSE:50MG/M2
     Route: 042
     Dates: start: 20070608, end: 20070612
  4. AMIKLIN [Suspect]
     Dosage: DAILY DOSE:850MG
     Dates: start: 20070609, end: 20070614
  5. ZELITREX [Suspect]
     Route: 048
  6. FORTUM [Suspect]
  7. FORTUM [Suspect]
     Dosage: TEXT:6 G
     Route: 042
  8. PLITICAN [Concomitant]
     Dates: start: 20070504, end: 20070517
  9. PLITICAN [Concomitant]
  10. ACETAMINOPHEN [Concomitant]

REACTIONS (5)
  - OEDEMA PERIPHERAL [None]
  - PAIN IN EXTREMITY [None]
  - PRURITUS [None]
  - RASH [None]
  - SKIN EXFOLIATION [None]
